FAERS Safety Report 8204900-6 (Version None)
Quarter: 2012Q1

REPORT INFORMATION
  Report Type: 
  Country: None (occurrence: None)
  Receive Date: 20120313
  Receipt Date: 20120306
  Transmission Date: 20120608
  Serious: Yes (Hospitalization, Other)
  Sender: FDA-Public Use
  Company Number: BR-ABBOTT-11P-020-0839032-00

PATIENT
  Sex: Female
  Weight: 75 kg

DRUGS (9)
  1. PRILOSEC [Concomitant]
     Indication: PROPHYLAXIS
  2. HUMIRA [Suspect]
     Indication: RHEUMATOID ARTHRITIS
     Route: 058
     Dates: start: 20090818, end: 20101227
  3. METHOTREXATE [Concomitant]
     Indication: RHEUMATOID ARTHRITIS
     Dosage: 6 TABLETS ONCE PER WEEK
     Dates: start: 20101201, end: 20110401
  4. REUQUINOL [Concomitant]
     Indication: RHEUMATOID ARTHRITIS
     Route: 048
     Dates: start: 20101201
  5. METHADONE HCL [Concomitant]
     Indication: PRODUCT USED FOR UNKNOWN INDICATION
     Dosage: 1/4 OF THE TABLET PER DAY
     Dates: start: 20101201, end: 20110501
  6. ENDOFOLIN [Concomitant]
     Indication: RHEUMATOID ARTHRITIS
     Dates: start: 20101201, end: 20110401
  7. PRILOSEC [Concomitant]
     Indication: GASTRIC DISORDER
  8. AMPLICTIL [Concomitant]
     Indication: SLEEP DISORDER
     Dates: start: 20101201, end: 20110501
  9. GALANTAMINE HYDROBROMIDE [Concomitant]
     Indication: MEMORY IMPAIRMENT
     Dates: start: 20101201

REACTIONS (10)
  - GAIT DISTURBANCE [None]
  - OXYGEN SATURATION DECREASED [None]
  - HYPERSOMNIA [None]
  - MEMORY IMPAIRMENT [None]
  - PYREXIA [None]
  - ASTHENIA [None]
  - TUBERCULOSIS [None]
  - RHEUMATOID ARTHRITIS [None]
  - IMMUNODEFICIENCY [None]
  - UNEVALUABLE EVENT [None]
